FAERS Safety Report 7282437-9 (Version None)
Quarter: 2011Q1

REPORT INFORMATION
  Report Type: 
  Country: None (occurrence: None)
  Receive Date: 20110209
  Receipt Date: 20110202
  Transmission Date: 20110831
  Serious: Yes (Other)
  Sender: FDA-Public Use
  Company Number: US-BRISTOL-MYERS SQUIBB COMPANY-15422645

PATIENT
  Age: 56 Year
  Sex: Male

DRUGS (3)
  1. HYDROCODONE BITARTRATE [Concomitant]
     Dosage: 1DF= 10-325, 1-2 ,
     Route: 048
  2. COUMADIN [Suspect]
     Indication: PROPHYLAXIS
     Dosage: ALSO TAKEN AS 5MG/2DAY:7.5MG/DAY, 10MG/DAY .0A64654A-EXPIRATION DATE :MAR-2013
     Route: 048
     Dates: start: 20101130
  3. CEFAZOLIN [Suspect]
     Dosage: 1DF= 29.8X 4DOSES
     Dates: start: 20101130, end: 20101201

REACTIONS (2)
  - HAEMORRHAGE [None]
  - INTERNATIONAL NORMALISED RATIO ABNORMAL [None]
